FAERS Safety Report 4438435-3 (Version None)
Quarter: 2004Q3

REPORT INFORMATION
  Report Type: 
  Country: None (occurrence: None)
  Receive Date: 20040827
  Receipt Date: 20040811
  Transmission Date: 20050211
  Serious: Yes (Hospitalization)
  Sender: FDA-Public Use
  Company Number: M2004.1086

PATIENT
  Age: 35 Year
  Sex: Female

DRUGS (12)
  1. RIMACTANE [Suspect]
     Indication: TUBERCULOSIS
     Dosage: SEE IMAGE
     Route: 048
     Dates: start: 20030829, end: 20030903
  2. RIMACTANE [Suspect]
     Indication: TUBERCULOSIS
     Dosage: SEE IMAGE
     Route: 048
     Dates: start: 20030904, end: 20031003
  3. PYRAZINAMIDE, UNK,  UNKNOWN MANUFACTURER [Suspect]
     Indication: TUBERCULOSIS
  4. ETHAMBUTOL DIHYDROCHLORIDE [Suspect]
     Indication: TUBERCULOSIS
     Dosage: SEE IMAGE
     Route: 048
     Dates: start: 20030829, end: 20030904
  5. ETHAMBUTOL DIHYDROCHLORIDE [Suspect]
     Indication: TUBERCULOSIS
     Dosage: SEE IMAGE
     Route: 048
     Dates: start: 20030905, end: 20030906
  6. ISONIAZID [Suspect]
     Indication: TUBERCULOSIS
     Dosage: 200 MG QD, ORAL
     Route: 048
     Dates: start: 20030829, end: 20030908
  7. MAGISTRAAL HOMEPATHIE [Suspect]
     Dosage: 1,1 G/D INTRAMUSCULAR
     Route: 030
     Dates: start: 20030912, end: 20031003
  8. CIPROFLOXACIN [Suspect]
     Indication: SEPTIC SHOCK
     Dosage: 400 MG/D IV INFUSION
     Dates: start: 20030926, end: 20030930
  9. FLUCONAZOLE [Suspect]
     Indication: SEPTIC SHOCK
     Dosage: 250 MG, BID, IV INFUSION
     Route: 042
     Dates: start: 20030731, end: 20030708
  10. CLINDAMYCIN HYDROCHLORIDE [Suspect]
     Indication: SEPTIC SHOCK
     Dosage: 300 MG/D, ORAL
     Route: 048
     Dates: start: 20030818, end: 20030903
  11. VALPROATE SODIUM, VALPROIC ACID [Concomitant]
  12. PHENYTOIN SODIUM [Concomitant]

REACTIONS (3)
  - CONVULSION [None]
  - SEPTIC SHOCK [None]
  - STEVENS-JOHNSON SYNDROME [None]
